FAERS Safety Report 9089461 (Version 1)
Quarter: 2013Q1

REPORT INFORMATION
  Report Type: Report from Study
  Country: US (occurrence: US)
  Receive Date: 20130130
  Receipt Date: 20130130
  Transmission Date: 20140127
  Serious: No
  Sender: FDA-Public Use
  Company Number: US-ABBOTT-12P-163-0959290-00

PATIENT
  Age: 35 Year
  Sex: Female

DRUGS (2)
  1. HUMIRA 40 MG/0.8 ML PEN [Suspect]
     Indication: CROHN^S DISEASE
     Dates: start: 20120623
  2. 6-MP [Concomitant]
     Indication: CROHN^S DISEASE

REACTIONS (5)
  - Injection site swelling [Recovering/Resolving]
  - Injection site erythema [Unknown]
  - Injection site erythema [Unknown]
  - Injection site warmth [Unknown]
  - Injection site pruritus [Unknown]
